FAERS Safety Report 5853048-4 (Version None)
Quarter: 2008Q3

REPORT INFORMATION
  Report Type: 
  Country: None (occurrence: None)
  Receive Date: 20080821
  Receipt Date: 20080811
  Transmission Date: 20090109
  Serious: Yes (Life-Threatening, Hospitalization, Other)
  Sender: FDA-Public Use
  Company Number: HQ5805116DEC2002

PATIENT
  Age: 62 Year
  Sex: Male
  Weight: 70 kg

DRUGS (1)
  1. GEMTUZUMAB OZOGAMICIN [Suspect]
     Route: 042
     Dates: start: 20021031, end: 20021031

REACTIONS (5)
  - DISSEMINATED INTRAVASCULAR COAGULATION [None]
  - ENCEPHALOPATHY [None]
  - HEPATOTOXICITY [None]
  - PYREXIA [None]
  - RECTAL HAEMORRHAGE [None]
